FAERS Safety Report 15979514 (Version 5)
Quarter: 2019Q3

REPORT INFORMATION
  Report Type: Spontaneous
  Country: US (occurrence: US)
  Receive Date: 20190219
  Receipt Date: 20190821
  Transmission Date: 20191004
  Serious: No
  Sender: FDA-Public Use
  Company Number: US-PFIZER INC-2019074015

PATIENT
  Age: 75 Year
  Sex: Female

DRUGS (11)
  1. BOSULIF [Suspect]
     Active Substance: BOSUTINIB MONOHYDRATE
     Dosage: 100 MG (2 TABLETS), QD (EVERDAY) W/FOOD]
     Route: 048
     Dates: start: 20190124, end: 20190325
  2. CALCIUM/VITAMIN D [CALCIUM;ERGOCALCIFEROL] [Concomitant]
     Dosage: 400 MG, DAILY
     Route: 048
     Dates: start: 20120919
  3. OMEGA-3 FATTY ACIDS [Concomitant]
     Active Substance: OMEGA-3 FATTY ACIDS
     Indication: BLOOD TRIGLYCERIDES
     Dosage: 1000 MG, DAILY
     Route: 048
     Dates: start: 20120919
  4. LISINOPRIL. [Concomitant]
     Active Substance: LISINOPRIL
     Indication: HYPERTENSION
     Dosage: 10 MG, DAILY
     Route: 048
     Dates: start: 20170928
  5. CALCIUM/VITAMIN D [CALCIUM;ERGOCALCIFEROL] [Concomitant]
     Indication: BONE DISORDER
     Dosage: 600 MG, DAILY
     Route: 048
     Dates: start: 20120919
  6. BOSULIF [Suspect]
     Active Substance: BOSUTINIB MONOHYDRATE
     Indication: CHRONIC MYELOID LEUKAEMIA
     Dosage: 400 MG, UNK
  7. BOSULIF [Suspect]
     Active Substance: BOSUTINIB MONOHYDRATE
     Dosage: 200 MG, UNK
  8. BOSULIF [Suspect]
     Active Substance: BOSUTINIB MONOHYDRATE
     Dosage: UNK
  9. HYDROCHLOROTHIAZIDE. [Concomitant]
     Active Substance: HYDROCHLOROTHIAZIDE
     Indication: HYPERTENSION
     Dosage: 12.5 MG, DAILY
     Route: 048
     Dates: start: 20170928
  10. GABAPENTIN. [Concomitant]
     Active Substance: GABAPENTIN
     Indication: NEURALGIA
     Dosage: 300 MG, 1X/DAY [300 MG PO QHS (EVERY BEDTIME)]
     Route: 048
     Dates: start: 20171227, end: 20190523
  11. AMLODIPINE [Concomitant]
     Active Substance: AMLODIPINE BESYLATE
     Indication: HYPERTENSION
     Dosage: 10 MG, DAILY
     Route: 048
     Dates: start: 20170928

REACTIONS (2)
  - Liver function test increased [Recovered/Resolved]
  - Hepatic function abnormal [Unknown]

NARRATIVE: CASE EVENT DATE: 20181213
